FAERS Safety Report 22234883 (Version 1)
Quarter: 2023Q2

REPORT INFORMATION
  Report Type: Spontaneous
  Country: US (occurrence: None)
  Receive Date: 20230419
  Receipt Date: 20230419
  Transmission Date: 20230721
  Serious: Yes (Disabling, Other)
  Sender: FDA-Public Use
  Company Number: None

PATIENT
  Age: 41 Year
  Sex: Female
  Weight: 96.75 kg

DRUGS (1)
  1. PARAGARD T 380A [Suspect]
     Active Substance: COPPER
     Indication: Contraception
     Dates: start: 20221025

REACTIONS (6)
  - Anger [None]
  - Mood swings [None]
  - Self-injurious ideation [None]
  - Brain fog [None]
  - Feeling abnormal [None]
  - Complication associated with device [None]

NARRATIVE: CASE EVENT DATE: 20230109
